FAERS Safety Report 17711664 (Version 1)
Quarter: 2020Q2

REPORT INFORMATION
  Report Type: Spontaneous
  Country: CA (occurrence: CA)
  Receive Date: 20200427
  Receipt Date: 20200427
  Transmission Date: 20200714
  Serious: Yes (Other)
  Sender: FDA-Public Use
  Company Number: CA-PFIZER INC-2018256828

PATIENT
  Age: 54 Year
  Sex: Male

DRUGS (9)
  1. DEPO-MEDROL [Concomitant]
     Active Substance: METHYLPREDNISOLONE ACETATE
     Dosage: 80 MG (INJECTED INTO RIGHT DELTOID)
     Route: 030
  2. METHOTREXATE. [Concomitant]
     Active Substance: METHOTREXATE
     Indication: RHEUMATOID ARTHRITIS
     Dosage: 20 MG, WEEKLY
  3. FOLIC ACID. [Concomitant]
     Active Substance: FOLIC ACID
     Dosage: UNK
     Route: 065
  4. LYRICA [Concomitant]
     Active Substance: PREGABALIN
     Indication: POOR QUALITY SLEEP
     Dosage: UNK
  5. LYRICA [Concomitant]
     Active Substance: PREGABALIN
     Indication: FIBROMYALGIA
  6. CANDESARTAN. [Concomitant]
     Active Substance: CANDESARTAN
     Dosage: UNK
  7. XELJANZ [Suspect]
     Active Substance: TOFACITINIB CITRATE
     Indication: RHEUMATOID ARTHRITIS
     Dosage: 5 MG, 2X/DAY
     Route: 048
     Dates: start: 20180616
  8. METHOTREXATE. [Concomitant]
     Active Substance: METHOTREXATE
     Dosage: 25 MG, WEEKLY
     Route: 048
  9. LEVODOPA-CARBIDOPA [Concomitant]
     Active Substance: CARBIDOPA\LEVODOPA
     Dosage: UNK

REACTIONS (19)
  - Joint range of motion decreased [Unknown]
  - Hypertension [Unknown]
  - Alanine aminotransferase increased [Recovered/Resolved]
  - Oxygen saturation decreased [Unknown]
  - Product dose omission [Unknown]
  - Blood uric acid increased [Unknown]
  - Therapeutic product effect incomplete [Unknown]
  - Rotator cuff syndrome [Unknown]
  - Pain [Unknown]
  - Stress [Unknown]
  - Myalgia [Unknown]
  - Red blood cell sedimentation rate decreased [Unknown]
  - Blood creatine phosphokinase increased [Unknown]
  - Arthralgia [Unknown]
  - Therapeutic response unexpected [Unknown]
  - Grip strength decreased [Unknown]
  - Hepatic enzyme abnormal [Unknown]
  - C-reactive protein increased [Unknown]
  - Hypertonia [Unknown]

NARRATIVE: CASE EVENT DATE: 201806
